FAERS Safety Report 10244240 (Version 1)
Quarter: 2014Q1

REPORT INFORMATION
  Report Type: Spontaneous
  Country: US (occurrence: None)
  Receive Date: 20140306
  Receipt Date: 20140306
  Transmission Date: 20141002
  Serious: Yes (Other)
  Sender: FDA-Public Use
  Company Number: 163-21880-13100672

PATIENT
  Age: 65 Year
  Sex: Female
  Weight: 51.17 kg

DRUGS (11)
  1. REVLIMID (LENALIDOMIDE) (25 MILLIGRAM, CAPSULES) [Suspect]
     Indication: PLASMA CELL MYELOMA
     Route: 048
     Dates: start: 201110, end: 2013
  2. VALACYCLOVIR HCL (VALACICLOVIR HYDROCHLORIDE) (TABLETS) [Concomitant]
  3. SYNTHROID (LEVOTHYROXINE SODIUM) (TABLETS) [Concomitant]
  4. PENICILLIN VK (PHENOXYMETHYLPENICILLIN POTASSIUM) (TABLETS) [Concomitant]
  5. DIPHENOXYLATE-ATROPINE (LOMOTIL) (TABLETS) [Concomitant]
  6. MULTIIVITAMINS (TABLETS) [Concomitant]
  7. CALCIUM + VITAMIN D (LEKOVIT CA) (TABLETS) [Concomitant]
  8. CHLORHEXIDINE GLUC (CHLORHEXIDINE GLUCONATE) (SOLUTION) [Concomitant]
  9. ASA (ACETYLSALICYLIC ACID) (UNKNOWN) [Concomitant]
  10. ZANTAC (RANITIDINE HYDROCHLORIDE) (UNKOWN) [Concomitant]
  11. DEXAMETHASONE (UNKNOWN) [Concomitant]

REACTIONS (1)
  - Cataract [None]
